FAERS Safety Report 23139717 (Version 1)
Quarter: 2023Q4

REPORT INFORMATION
  Report Type: Spontaneous
  Country: US (occurrence: None)
  Receive Date: 20231102
  Receipt Date: 20231102
  Transmission Date: 20240109
  Serious: Yes (Hospitalization)
  Sender: FDA-Public Use
  Company Number: None

PATIENT
  Sex: Male

DRUGS (2)
  1. ADVATE [Suspect]
     Active Substance: ANTIHEMOPHILIC FACTOR, HUMAN RECOMBINANT
     Indication: Factor VIII deficiency
     Dosage: OTHER QUANTITY : 2215 UNITS;?OTHER ROUTE : INFUSE ;?INFUSE 2215 UNITS (1994-2436)SLOW SLOW IV PUSH T
     Route: 050
     Dates: start: 202303
  2. ADVATE [Suspect]
     Active Substance: ANTIHEMOPHILIC FACTOR, HUMAN RECOMBINANT
     Indication: Factor VIII deficiency
     Dosage: OTHER STRENGTH : 2000;?OTHER ROUTE : INFUSE ;? INFUSE 2215 UNITS (1994-2436)SLOW SLOW IV PUSH THREE
     Route: 050

REACTIONS (2)
  - Coronary arterial stent insertion [None]
  - Dyspnoea [None]
